FAERS Safety Report 7326770-0 (Version None)
Quarter: 2011Q1

REPORT INFORMATION
  Report Type: 
  Country: None (occurrence: None)
  Receive Date: 20110302
  Receipt Date: 20110224
  Transmission Date: 20110831
  Serious: Yes (Death)
  Sender: FDA-Public Use
  Company Number: IT-GENZYME-FLUD-1000763

PATIENT
  Age: 52 Year

DRUGS (3)
  1. FLUDARA [Suspect]
     Indication: LEUKAEMIA CUTIS
     Dosage: UNK
     Route: 065
     Dates: start: 20090801
  2. IDARUBICIN [Suspect]
     Indication: LEUKAEMIA CUTIS
     Dosage: UNK
     Route: 065
     Dates: start: 20090801
  3. CYTOSINE ARABINOSIDE [Suspect]
     Indication: LEUKAEMIA CUTIS
     Dosage: UNK
     Route: 065
     Dates: start: 20090801

REACTIONS (1)
  - NEOPLASM MALIGNANT [None]
